FAERS Safety Report 6351298-4 (Version None)
Quarter: 2009Q3

REPORT INFORMATION
  Report Type: 
  Country: None (occurrence: None)
  Receive Date: 20090912
  Receipt Date: 20090622
  Transmission Date: 20100115
  Serious: No
  Sender: FDA-Public Use
  Company Number: US-ABBOTT-07P-163-0378551-00

PATIENT
  Sex: Female
  Weight: 71.732 kg

DRUGS (14)
  1. HUMIRA [Suspect]
     Indication: CROHN'S DISEASE
     Route: 058
     Dates: start: 20070818
  2. HUMIRA [Suspect]
     Route: 058
     Dates: start: 20070818
  3. HUMIRA [Suspect]
     Route: 058
     Dates: start: 20070818
  4. PREDNISONE [Concomitant]
     Indication: DRUG USE FOR UNKNOWN INDICATION
  5. MERCAPTOPURINE [Concomitant]
     Indication: DRUG USE FOR UNKNOWN INDICATION
  6. MESALAZINE [Concomitant]
     Indication: DRUG USE FOR UNKNOWN INDICATION
  7. PANTOPRAZOLE SODIUM [Concomitant]
     Indication: DRUG USE FOR UNKNOWN INDICATION
  8. MICALCIUM [Concomitant]
     Indication: DRUG USE FOR UNKNOWN INDICATION
  9. CETIRIZINE HYDROCHLORIDE [Concomitant]
     Indication: DRUG USE FOR UNKNOWN INDICATION
  10. ZOLPIDEM TARTRATE [Concomitant]
     Indication: DRUG USE FOR UNKNOWN INDICATION
  11. CALCIUM [Concomitant]
     Indication: DRUG USE FOR UNKNOWN INDICATION
  12. MAGNESIUM [Concomitant]
     Indication: DRUG USE FOR UNKNOWN INDICATION
  13. M.V.I. [Concomitant]
     Indication: DRUG USE FOR UNKNOWN INDICATION
  14. IRON [Concomitant]
     Indication: DRUG USE FOR UNKNOWN INDICATION

REACTIONS (1)
  - INCORRECT DOSE ADMINISTERED [None]
